FAERS Safety Report 15476538 (Version 2)
Quarter: 2018Q4

REPORT INFORMATION
  Report Type: Spontaneous
  Country: US (occurrence: US)
  Receive Date: 20181009
  Receipt Date: 20181010
  Transmission Date: 20190205
  Serious: No
  Sender: FDA-Public Use
  Company Number: US-SHIRE-US201838893

PATIENT
  Sex: Female

DRUGS (2)
  1. EQUATE [Concomitant]
     Indication: DRY EYE
  2. XIIDRA [Suspect]
     Active Substance: LIFITEGRAST
     Indication: DRY EYE
     Route: 047
     Dates: start: 20181005

REACTIONS (3)
  - Photophobia [Unknown]
  - Vision blurred [Unknown]
  - Instillation site reaction [Unknown]
